FAERS Safety Report 10150305 (Version 2)
Quarter: 2014Q2

REPORT INFORMATION
  Report Type: Spontaneous
  Country: US (occurrence: US)
  Receive Date: 20140502
  Receipt Date: 20140623
  Transmission Date: 20141212
  Serious: Yes (Hospitalization)
  Sender: FDA-Public Use
  Company Number: US-BRISTOL-MYERS SQUIBB COMPANY-20676607

PATIENT
  Sex: Male

DRUGS (1)
  1. REYATAZ CAPS [Suspect]

REACTIONS (2)
  - Accident [Unknown]
  - Jaw disorder [Unknown]
